FAERS Safety Report 25996208 (Version 1)
Quarter: 2025Q4

REPORT INFORMATION
  Report Type: Spontaneous
  Country: US (occurrence: US)
  Receive Date: 20251104
  Receipt Date: 20251104
  Transmission Date: 20260117
  Serious: Yes (Hospitalization, Other)
  Sender: AMGEN
  Company Number: US-AMGEN-USASP2025215069

PATIENT
  Age: 69 Year
  Sex: Male

DRUGS (6)
  1. PREDNISONE [Suspect]
     Active Substance: PREDNISONE
     Indication: Immunosuppressant drug therapy
     Dosage: 5 MILLIGRAM, QD
     Route: 065
  2. PEGFILGRASTIM [Suspect]
     Active Substance: PEGFILGRASTIM
     Indication: Product used for unknown indication
     Dosage: UNK
     Route: 065
     Dates: start: 202411
  3. TARLATAMAB [Suspect]
     Active Substance: TARLATAMAB
     Indication: Small cell lung cancer extensive stage
     Dosage: 1 MILLIGRAM, (ON DAY ONE)
     Route: 065
     Dates: start: 202504
  4. TARLATAMAB [Suspect]
     Active Substance: TARLATAMAB
     Indication: Metastases to central nervous system
     Dosage: 10 MILLIGRAM, (ON DAY EIGHT)
     Route: 065
     Dates: start: 2025
  5. TARLATAMAB [Suspect]
     Active Substance: TARLATAMAB
     Dosage: 10 MILLIGRAM, Q2WK
     Route: 065
     Dates: start: 202506
  6. TACROLIMUS [Concomitant]
     Active Substance: TACROLIMUS
     Indication: Immunosuppressant drug therapy
     Dosage: UNK

REACTIONS (6)
  - Acute respiratory failure [Unknown]
  - Pneumonia viral [Unknown]
  - Systemic inflammatory response syndrome [Unknown]
  - Small cell lung cancer extensive stage [Recovering/Resolving]
  - Metastases to central nervous system [Unknown]
  - Therapeutic product effect incomplete [Unknown]

NARRATIVE: CASE EVENT DATE: 20240301
